FAERS Safety Report 8495612-2 (Version None)
Quarter: 2012Q3

REPORT INFORMATION
  Report Type: 
  Country: None (occurrence: None)
  Receive Date: 20120709
  Receipt Date: 20120625
  Transmission Date: 20120928
  Serious: No
  Sender: FDA-Public Use
  Company Number: US-ASTRAZENECA-2012SE34143

PATIENT
  Age: 51 Year
  Sex: Female
  Weight: 90.7 kg

DRUGS (5)
  1. TOPROL-XL [Suspect]
     Route: 048
  2. TOPROL-XL [Suspect]
     Indication: CARDIAC DISORDER
     Route: 048
     Dates: start: 19980101
  3. TOPROL-XL [Suspect]
     Route: 048
  4. VITAMIN TAB [Concomitant]
  5. TOPROL-XL [Suspect]
     Indication: BLOOD PRESSURE ABNORMAL
     Route: 048
     Dates: start: 19980101

REACTIONS (8)
  - DIZZINESS [None]
  - ABDOMINAL DISCOMFORT [None]
  - DIZZINESS POSTURAL [None]
  - DRUG DOSE OMISSION [None]
  - FEELING ABNORMAL [None]
  - BLOOD PRESSURE INCREASED [None]
  - MIGRAINE [None]
  - HEADACHE [None]
